FAERS Safety Report 23783436 (Version 1)
Quarter: 2024Q2

REPORT INFORMATION
  Report Type: Spontaneous
  Country: FR (occurrence: FR)
  Receive Date: 20240425
  Receipt Date: 20240425
  Transmission Date: 20240716
  Serious: Yes (Other)
  Sender: FDA-Public Use
  Company Number: FR-TAKEDA-2024TUS038748

PATIENT
  Age: 12 Year
  Sex: Male

DRUGS (2)
  1. LANADELUMAB [Suspect]
     Active Substance: LANADELUMAB
     Indication: Hereditary angioedema
     Dosage: 1 DOSAGE FORM
     Route: 065
  2. LANADELUMAB [Suspect]
     Active Substance: LANADELUMAB
     Dosage: 150 MILLIGRAM, Q2WEEKS
     Route: 065

REACTIONS (1)
  - Seizure [Unknown]
